FAERS Safety Report 8256149 (Version 3)
Quarter: 2014Q2

REPORT INFORMATION
  Report Type: Spontaneous
  Country: CA (occurrence: CA)
  Receive Date: 20111121
  Receipt Date: 20140506
  Transmission Date: 20141212
  Serious: Yes (Other)
  Sender: FDA-Public Use
  Company Number: CA-RANBAXY-2011US-50480

PATIENT
  Age: 27 Year
  Sex: Female

DRUGS (4)
  1. RISPERIDONE [Suspect]
     Indication: BIPOLAR DISORDER
     Dosage: 0.25 MG, DAILY
     Route: 065
  2. QUETIAPINE [Interacting]
     Indication: INSOMNIA
     Dosage: 25 MG, NIGHTLY
     Route: 065
  3. LITHIUM [Interacting]
     Indication: BIPOLAR DISORDER
     Dosage: 1050 MG, DAILY
     Route: 065
  4. RISPERIDONE [Interacting]
     Indication: BIPOLAR DISORDER
     Dosage: 25 MG, FORTNIGHTLY
     Route: 065

REACTIONS (2)
  - Diabetes insipidus [Recovered/Resolved]
  - Drug interaction [Recovered/Resolved]
